FAERS Safety Report 6075057-5 (Version None)
Quarter: 2009Q1

REPORT INFORMATION
  Report Type: 
  Country: None (occurrence: None)
  Receive Date: 20090212
  Receipt Date: 20090203
  Transmission Date: 20090719
  Serious: Yes (Hospitalization)
  Sender: FDA-Public Use
  Company Number: BR-NOVOPROD-283061

PATIENT
  Age: 69 Year
  Sex: Male
  Weight: 85 kg

DRUGS (5)
  1. NOVOLIN N [Suspect]
     Indication: TYPE 2 DIABETES MELLITUS
     Dosage: 36 U, QD
     Route: 058
  2. NOVOLIN N [Suspect]
     Dosage: 40 U, QD
     Route: 058
  3. NOVOLIN N [Suspect]
     Dosage: 36 U, QD
     Route: 058
  4. ESPIRONOLACTONA [Concomitant]
     Dosage: 25 MG, QD
     Route: 048
  5. ACID ACETYLSALICYLIC [Concomitant]
     Dosage: 200 MG, QD

REACTIONS (6)
  - DIZZINESS [None]
  - HYPERGLYCAEMIA [None]
  - HYPOGLYCAEMIA [None]
  - NAUSEA [None]
  - PNEUMONIA [None]
  - PRODUCT QUALITY ISSUE [None]
